FAERS Safety Report 8935281 (Version 1)
Quarter: 2012Q4

REPORT INFORMATION
  Report Type: 
  Country: US (occurrence: US)
  Receive Date: 20121129
  Receipt Date: 20121129
  Transmission Date: 20130627
  Serious: Yes (Other)
  Sender: FDA-Public Use
  Company Number: US-PFIZER INC-2012298714

PATIENT
  Age: 64 Year
  Sex: Female
  Weight: 58.96 kg

DRUGS (11)
  1. LYRICA [Suspect]
     Indication: FIBROMYALGIA
     Dosage: 25 mg, UNK
  2. LYRICA [Suspect]
     Dosage: 50 mg, UNK
  3. LYRICA [Suspect]
     Dosage: 75 mg, UNK
  4. LYRICA [Suspect]
     Dosage: 100 mg, UNK
  5. LYRICA [Suspect]
     Dosage: 200 mg, UNK
  6. LYRICA [Suspect]
     Dosage: UNK
  7. LYRICA [Suspect]
     Dosage: 25 mg, weekly
  8. BUMEX [Concomitant]
     Indication: DIURETIC THERAPY
     Dosage: 0.5 mg, UNK
  9. BENICAR [Concomitant]
     Indication: HEART DISORDER
     Dosage: 40 mg, daily
  10. ASPIRIN [Concomitant]
     Dosage: 81 mg, daily
  11. NEXIUM [Concomitant]
     Indication: GASTRIC DISORDER
     Dosage: UNK,daily

REACTIONS (23)
  - Aphagia [Unknown]
  - Suicide attempt [Unknown]
  - Panic attack [Unknown]
  - Nervous system disorder [Unknown]
  - Anxiety [Not Recovered/Not Resolved]
  - Visual impairment [Unknown]
  - Balance disorder [Unknown]
  - Oedema peripheral [Not Recovered/Not Resolved]
  - Abdominal pain upper [Unknown]
  - Diarrhoea [Unknown]
  - Vomiting [Unknown]
  - Chills [Unknown]
  - Weight decreased [Unknown]
  - Nervousness [Unknown]
  - Feeling abnormal [Unknown]
  - Insomnia [Not Recovered/Not Resolved]
  - Abnormal behaviour [Unknown]
  - Muscle spasms [Unknown]
  - Fatigue [Unknown]
  - Dry mouth [Unknown]
  - Pain [Unknown]
  - Feeling abnormal [Unknown]
  - Pollakiuria [Unknown]
